FAERS Safety Report 9671896 (Version 1)
Quarter: 2013Q4

REPORT INFORMATION
  Report Type: Spontaneous
  Country: US (occurrence: US)
  Receive Date: 20131106
  Receipt Date: 20131106
  Transmission Date: 20140711
  Serious: No
  Sender: FDA-Public Use
  Company Number: US-BAYER-2013-135191

PATIENT
  Sex: Male
  Weight: 88.44 kg

DRUGS (2)
  1. ALEVE CAPLET [Suspect]
     Indication: BACK PAIN
     Dosage: 1 DF, BID
     Route: 048
     Dates: start: 201310
  2. ALEVE LIQUID GELS [Suspect]
     Dosage: 1 DF, BID
     Route: 048
     Dates: start: 2010

REACTIONS (2)
  - Drug ineffective [None]
  - Incorrect drug administration duration [None]
